FAERS Safety Report 8004782-1 (Version None)
Quarter: 2011Q4

REPORT INFORMATION
  Report Type: 
  Country: None (occurrence: None)
  Receive Date: 20111223
  Receipt Date: 20111214
  Transmission Date: 20120403
  Serious: Yes (Other)
  Sender: FDA-Public Use
  Company Number: TR-BRISTOL-MYERS SQUIBB COMPANY-16091662

PATIENT
  Age: 33 Year
  Sex: Female

DRUGS (4)
  1. FOLIC ACID [Concomitant]
  2. RISEDRONATE SODIUM [Concomitant]
  3. ORENCIA [Suspect]
     Indication: RHEUMATOID ARTHRITIS
     Dosage: 750MG/MONTH
     Route: 042
     Dates: start: 20110317
  4. METHOTREXATE [Concomitant]

REACTIONS (1)
  - OEDEMA PERIPHERAL [None]
